FAERS Safety Report 19816949 (Version 2)
Quarter: 2021Q3

REPORT INFORMATION
  Report Type: Spontaneous
  Country: GB (occurrence: GB)
  Receive Date: 20210910
  Receipt Date: 20210930
  Transmission Date: 20211014
  Serious: Yes (Hospitalization, Other)
  Sender: FDA-Public Use
  Company Number: GB-TEVA-2021-GB-1949910

PATIENT
  Sex: Male

DRUGS (12)
  1. PREDNISOLONE. [Suspect]
     Active Substance: PREDNISOLONE
     Indication: COLITIS ULCERATIVE
     Route: 048
     Dates: start: 2017
  2. CICLOSPORIN [Suspect]
     Active Substance: CYCLOSPORINE
     Indication: DERMATITIS ATOPIC
     Route: 048
     Dates: start: 2017
  3. TOFACITINIB [Suspect]
     Active Substance: TOFACITINIB
     Indication: COLITIS ULCERATIVE
  4. PREDNISOLONE. [Suspect]
     Active Substance: PREDNISOLONE
     Indication: ALOPECIA UNIVERSALIS
     Dosage: RESTARTED FOR ATOPIC DERMATITIS FLARE AND ALOPECIA UNIVERSALIS
     Route: 048
     Dates: start: 2017
  5. CLOBETASOL PROPIONATE. [Suspect]
     Active Substance: CLOBETASOL PROPIONATE
     Indication: DERMATITIS ATOPIC
     Dosage: CLOBETASONE?PROPIONATE
     Route: 061
     Dates: start: 2017
  6. TOFACITINIB [Suspect]
     Active Substance: TOFACITINIB
     Indication: ALOPECIA UNIVERSALIS
     Route: 065
     Dates: start: 2019
  7. PREDNISOLONE. [Suspect]
     Active Substance: PREDNISOLONE
     Indication: DERMATITIS ATOPIC
  8. TOFACITINIB [Suspect]
     Active Substance: TOFACITINIB
     Indication: DERMATITIS ATOPIC
     Route: 065
     Dates: start: 2019
  9. TACROLIMUS. [Suspect]
     Active Substance: TACROLIMUS
     Indication: COLITIS ULCERATIVE
     Route: 065
     Dates: start: 2017
  10. 6?MERCAPTOPURINE [Suspect]
     Active Substance: MERCAPTOPURINE
     Indication: COLITIS ULCERATIVE
     Route: 065
  11. GOLIMUMAB [Suspect]
     Active Substance: GOLIMUMAB
     Indication: COLITIS ULCERATIVE
     Route: 065
  12. VEDOLIZUMAB [Suspect]
     Active Substance: VEDOLIZUMAB
     Indication: COLITIS ULCERATIVE
     Dosage: 4 WEEKLY VEDOLIZUMAB
     Route: 065
     Dates: start: 2017

REACTIONS (4)
  - Off label use [Unknown]
  - Rebound effect [Recovering/Resolving]
  - Treatment failure [Unknown]
  - Dermatitis atopic [Recovering/Resolving]

NARRATIVE: CASE EVENT DATE: 2017
